FAERS Safety Report 21610527 (Version 4)
Quarter: 2023Q1

REPORT INFORMATION
  Report Type: Spontaneous
  Country: TW (occurrence: TW)
  Receive Date: 20221117
  Receipt Date: 20230331
  Transmission Date: 20230418
  Serious: Yes (Death, Hospitalization, Other)
  Sender: FDA-Public Use
  Company Number: TW-JNJFOC-20221137491

PATIENT
  Age: 57 Year
  Sex: Female

DRUGS (9)
  1. YONDELIS [Suspect]
     Active Substance: TRABECTEDIN
     Indication: Uterine leiomyosarcoma
     Route: 041
     Dates: start: 20221020
  2. DOXORUBICIN [Suspect]
     Active Substance: DOXORUBICIN
     Indication: Uterine leiomyosarcoma
     Route: 042
     Dates: start: 20221020
  3. MODERNA COVID-19 VACCINE [Concomitant]
     Active Substance: ELASOMERAN
     Indication: COVID-19
     Route: 065
     Dates: start: 20221025, end: 20221025
  4. AMINO ACIDS\DEXTROSE\ELECTROLYTES NOS\SOYBEAN OIL [Concomitant]
     Active Substance: AMINO ACIDS\DEXTROSE\ELECTROLYTES NOS\SOYBEAN OIL
     Indication: Hypophagia
  5. TRIAMCINOLONE ACETONIDE [Concomitant]
     Active Substance: TRIAMCINOLONE ACETONIDE
     Indication: Hypophosphataemia
  6. TRIAMCINOLONE ACETONIDE [Concomitant]
     Active Substance: TRIAMCINOLONE ACETONIDE
     Indication: Hypokalaemia
  7. MICAFUNGIN [Concomitant]
     Active Substance: MICAFUNGIN
     Indication: Antifungal prophylaxis
  8. AMPICILLIN [Concomitant]
     Active Substance: AMPICILLIN
     Indication: Enterococcal infection
  9. MEROPENEM [Concomitant]
     Active Substance: MEROPENEM
     Indication: Bacterial infection

REACTIONS (3)
  - Febrile neutropenia [Fatal]
  - Pneumonia [Fatal]
  - Product use issue [Unknown]

NARRATIVE: CASE EVENT DATE: 20221030
